FAERS Safety Report 7650274-9 (Version None)
Quarter: 2011Q3

REPORT INFORMATION
  Report Type: 
  Country: None (occurrence: None)
  Receive Date: 20110727
  Receipt Date: 20110715
  Transmission Date: 20111222
  Serious: Yes (Hospitalization)
  Sender: FDA-Public Use
  Company Number: LEO-2011-00220

PATIENT
  Age: 53 Year
  Sex: Female
  Weight: 55 kg

DRUGS (1)
  1. TACLONEX SCALP [Suspect]
     Indication: PSORIASIS
     Dosage: (1. IN, 1.A D),TOPICAL
     Route: 061
     Dates: start: 20101119, end: 20110111

REACTIONS (12)
  - SWELLING [None]
  - CHILLS [None]
  - MALAISE [None]
  - MYALGIA [None]
  - SKIN EXFOLIATION [None]
  - ERYTHRODERMIC PSORIASIS [None]
  - PYREXIA [None]
  - DERMATITIS [None]
  - ERYTHEMA [None]
  - OROPHARYNGEAL PAIN [None]
  - ASTHENIA [None]
  - ARTHRALGIA [None]
